FAERS Safety Report 15381015 (Version 2)
Quarter: 2018Q4

REPORT INFORMATION
  Report Type: Report from Study
  Country: US (occurrence: US)
  Receive Date: 20180913
  Receipt Date: 20181001
  Transmission Date: 20190204
  Serious: Yes (Death)
  Sender: FDA-Public Use
  Company Number: US-ASTELLAS-2017US056968

PATIENT
  Sex: Male

DRUGS (1)
  1. ENZALUTAMIDE [Suspect]
     Active Substance: ENZALUTAMIDE
     Indication: HORMONE-REFRACTORY PROSTATE CANCER
     Route: 048
     Dates: start: 20171111

REACTIONS (6)
  - Death [Fatal]
  - Pollakiuria [Unknown]
  - Oropharyngeal pain [Unknown]
  - Chest pain [Unknown]
  - Epistaxis [Unknown]
  - Peripheral swelling [Unknown]
